FAERS Safety Report 7974031-9 (Version None)
Quarter: 2011Q4

REPORT INFORMATION
  Report Type: 
  Country: None (occurrence: None)
  Receive Date: 20111213
  Receipt Date: 20111208
  Transmission Date: 20120403
  Serious: Yes (Hospitalization)
  Sender: FDA-Public Use
  Company Number: FR-GLAXOSMITHKLINE-B0756542A

PATIENT
  Sex: Female

DRUGS (5)
  1. LEVOTHYROXINE SODIUM [Concomitant]
     Dosage: 100MCG PER DAY
  2. VALPROIC ACID [Suspect]
     Indication: BIPOLAR I DISORDER
     Dosage: 30MG TWICE PER DAY
     Route: 048
     Dates: start: 20110924, end: 20111007
  3. GESTODENE AND ETHINYL ESTRADIOL [Concomitant]
  4. ESCITALOPRAM OXALATE [Concomitant]
     Indication: BIPOLAR I DISORDER
     Dates: end: 20110921
  5. LAMICTAL [Suspect]
     Indication: BIPOLAR I DISORDER
     Dosage: 25MG TWICE PER DAY
     Route: 048
     Dates: start: 20110924, end: 20111007

REACTIONS (15)
  - PHARYNGITIS [None]
  - STEVENS-JOHNSON SYNDROME [None]
  - PYREXIA [None]
  - STOMATITIS [None]
  - DRUG INTERACTION [None]
  - HEPATOCELLULAR INJURY [None]
  - SKIN DISORDER [None]
  - RASH PAPULAR [None]
  - CHEILITIS [None]
  - ODYNOPHAGIA [None]
  - ERYTHEMA [None]
  - FEELING HOT [None]
  - RASH GENERALISED [None]
  - RASH MACULO-PAPULAR [None]
  - VISION BLURRED [None]
